FAERS Safety Report 5933061-9 (Version None)
Quarter: 2008Q4

REPORT INFORMATION
  Report Type: 
  Country: None (occurrence: None)
  Receive Date: 20081023
  Receipt Date: 20060927
  Transmission Date: 20090506
  Serious: Yes (Death, Hospitalization, Other)
  Sender: FDA-Public Use
  Company Number: 2006AL002976

PATIENT
  Age: 91 Year
  Sex: Female

DRUGS (5)
  1. DICLOFENAC SODIUM [Suspect]
     Indication: OSTEOARTHRITIS
  2. BUMETANIDE [Concomitant]
  3. IBUPROFEN TABLETS [Concomitant]
  4. SPIRONOLACTONE [Concomitant]
  5. DIGOXIN [Concomitant]

REACTIONS (4)
  - BLOOD POTASSIUM INCREASED [None]
  - FALL [None]
  - RENAL FAILURE [None]
  - THERAPEUTIC AGENT TOXICITY [None]
